FAERS Safety Report 6507680-5 (Version None)
Quarter: 2009Q4

REPORT INFORMATION
  Report Type: 
  Country: None (occurrence: None)
  Receive Date: 20091221
  Receipt Date: 20091215
  Transmission Date: 20100525
  Serious: Yes (Life-Threatening, Hospitalization)
  Sender: FDA-Public Use
  Company Number: FR-CELGENEUS-056-20484-09120494

PATIENT
  Age: 43 Year
  Sex: Male
  Weight: 70 kg

DRUGS (3)
  1. INNOHEP [Suspect]
     Route: 058
     Dates: start: 20091001, end: 20091201
  2. EFFERALGAN CODEINE [Concomitant]
     Indication: PAIN
     Route: 065
  3. PANADEINE CO [Concomitant]
     Indication: DRUG USE FOR UNKNOWN INDICATION
     Route: 048
     Dates: start: 20091001

REACTIONS (2)
  - PULMONARY EMBOLISM [None]
  - RESPIRATORY DISTRESS [None]
